FAERS Safety Report 10363986 (Version 2)
Quarter: 2014Q4

REPORT INFORMATION
  Report Type: Report from Study
  Country: AU (occurrence: AU)
  Receive Date: 20140805
  Receipt Date: 20141017
  Transmission Date: 20150528
  Serious: Yes (Hospitalization)
  Sender: FDA-Public Use
  Company Number: PHHY2014AU094563

PATIENT
  Sex: Male

DRUGS (1)
  1. ACLASTA [Suspect]
     Active Substance: ZOLEDRONIC ACID
     Indication: PRODUCT USED FOR UNKNOWN INDICATION
     Dosage: 5 MG, UNK
     Route: 042
     Dates: start: 201305

REACTIONS (5)
  - Pneumonia [Unknown]
  - Pulmonary fibrosis [Unknown]
  - Osteoporosis [Unknown]
  - Visual impairment [Unknown]
  - Exposure to chemical pollution [Unknown]
